FAERS Safety Report 21097505 (Version 2)
Quarter: 2022Q3

REPORT INFORMATION
  Report Type: Spontaneous
  Country: PL (occurrence: PL)
  Receive Date: 20220719
  Receipt Date: 20220719
  Transmission Date: 20221026
  Serious: Yes (Hospitalization)
  Sender: FDA-Public Use
  Company Number: PL-KRKA-PL2022K08473LIT

PATIENT
  Age: 78 Year
  Sex: Female

DRUGS (7)
  1. ACETAMINOPHEN [Suspect]
     Active Substance: ACETAMINOPHEN
     Indication: Antipyresis
     Route: 065
  2. METOPROLOL [Suspect]
     Active Substance: METOPROLOL
     Indication: Product used for unknown indication
     Dosage: 12.5 MG, PER DAY
     Route: 065
  3. TORSEMIDE [Suspect]
     Active Substance: TORSEMIDE
     Indication: Product used for unknown indication
     Dosage: 5 MG, PER DAY
     Route: 065
  4. ZOFENOPRIL [Suspect]
     Active Substance: ZOFENOPRIL
     Indication: Product used for unknown indication
     Dosage: 7.5 MG, PER DAY
     Route: 065
  5. CLARITHROMYCIN [Interacting]
     Active Substance: CLARITHROMYCIN
     Indication: Bronchitis
     Dosage: 500 MG, 2X PER DAY
     Route: 065
  6. AMLODIPINE [Interacting]
     Active Substance: AMLODIPINE BESYLATE
     Indication: Product used for unknown indication
     Dosage: 10 MG, PER DAY
     Route: 065
  7. ERDOSTEINE [Suspect]
     Active Substance: ERDOSTEINE
     Indication: Bronchitis
     Dosage: 300 MG, 2X PER DAY
     Route: 065

REACTIONS (4)
  - Hyponatraemia [Unknown]
  - Oedema peripheral [Unknown]
  - Drug interaction [Unknown]
  - Bronchitis [Recovering/Resolving]
